FAERS Safety Report 7005768-6 (Version None)
Quarter: 2010Q3

REPORT INFORMATION
  Report Type: 
  Country: None (occurrence: None)
  Receive Date: 20100921
  Receipt Date: 20100908
  Transmission Date: 20110219
  Serious: Yes (Hospitalization, Other)
  Sender: FDA-Public Use
  Company Number: FR-ELI_LILLY_AND_COMPANY-FR200912001434

PATIENT
  Sex: Female
  Weight: 73 kg

DRUGS (3)
  1. GEMCITABINE HCL [Suspect]
     Indication: BREAST CANCER METASTATIC
     Dosage: 1000 MG/M2, ON DAY 1 AND 8 EVERY 3 WEEKS
     Route: 042
     Dates: start: 20091123, end: 20091123
  2. VINFLUNINE [Suspect]
     Indication: BREAST CANCER METASTATIC
     Dosage: 320 MG/M2, ON DAY 1
     Route: 042
     Dates: start: 20091123
  3. MORPHINE [Concomitant]
     Indication: ARTHRALGIA
     Dosage: UNK, UNK
     Route: 042
     Dates: start: 20091126, end: 20091126

REACTIONS (3)
  - CONSTIPATION [None]
  - DECREASED APPETITE [None]
  - MUCOSAL INFLAMMATION [None]
